FAERS Safety Report 4953889-1 (Version None)
Quarter: 2006Q1

REPORT INFORMATION
  Report Type: 
  Country: None (occurrence: None)
  Receive Date: 20060324
  Receipt Date: 20060324
  Transmission Date: 20060701
  Serious: No
  Sender: FDA-Public Use
  Company Number: None

PATIENT
  Age: 95 Year
  Sex: Male

DRUGS (1)
  1. EQUATE POWDER LAXATIVE PERRIGO COMPANY [Suspect]
     Indication: FAECES HARD
     Dosage: 1 TABLESPOON 3 DILY PO
     Route: 048

REACTIONS (4)
  - ABDOMINAL PAIN UPPER [None]
  - DIARRHOEA [None]
  - MALAISE [None]
  - VOMITING [None]
